FAERS Safety Report 13860175 (Version 1)
Quarter: 2017Q3

REPORT INFORMATION
  Report Type: Spontaneous
  Country: GB (occurrence: GB)
  Receive Date: 20170811
  Receipt Date: 20170811
  Transmission Date: 20171127
  Serious: Yes (Life-Threatening)
  Sender: FDA-Public Use
  Company Number: GB-ACCORD-057162

PATIENT
  Age: 48 Year
  Sex: Male
  Weight: 100 kg

DRUGS (4)
  1. EPLERENONE. [Concomitant]
     Active Substance: EPLERENONE
     Indication: HYPERTENSION
     Dosage: INITIALLY RECEIVED 100MG THEN 200MG THEN 300MG AND FINALLY 400MG DAILY IN 2017
     Dates: start: 201702, end: 2017
  2. CITALOPRAM [Concomitant]
     Active Substance: CITALOPRAM HYDROBROMIDE
  3. SPIRONOLACTONE. [Suspect]
     Active Substance: SPIRONOLACTONE
     Indication: HYPERTENSION
     Dosage: 200MG DAILY WITH EXTRA 100MG EVERY OTHER DAY.
     Route: 048
     Dates: start: 20020711
  4. SPIRONOLACTONE. [Suspect]
     Active Substance: SPIRONOLACTONE
     Indication: HYPERTENSION
     Dosage: PREVIOUSLY RECEIVED 200 MG FROM 11-JUL-2002 TO 2008, 300 MG ONCE IN 2 DAYS FROM 2008 TO OCT-2014.
     Route: 048
     Dates: start: 201412, end: 201702

REACTIONS (6)
  - Gynaecomastia [Not Recovered/Not Resolved]
  - Gender dysphoria [Not Recovered/Not Resolved]
  - Insomnia [Unknown]
  - Erectile dysfunction [Unknown]
  - Loss of libido [Not Recovered/Not Resolved]
  - Mental disorder [Recovering/Resolving]

NARRATIVE: CASE EVENT DATE: 20090101
